FAERS Safety Report 6158324-6 (Version None)
Quarter: 2009Q2

REPORT INFORMATION
  Report Type: 
  Country: None (occurrence: None)
  Receive Date: 20090414
  Receipt Date: 20090414
  Transmission Date: 20091009
  Serious: No
  Sender: FDA-Public Use
  Company Number: None

PATIENT
  Sex: Female
  Weight: 70.68 kg

DRUGS (10)
  1. GABAPENTIN [Suspect]
     Dosage: 300MG CAPSULE 300 MG TID ORAL
     Route: 048
     Dates: start: 20081114, end: 20090413
  2. ADVAIR HFA [Concomitant]
  3. FLOVENT [Concomitant]
  4. LEVOTHYROXINE SODIUM [Concomitant]
  5. LIDODERM [Concomitant]
  6. LORAZEPAM [Concomitant]
  7. MIRALAX [Concomitant]
  8. PREMARIN [Concomitant]
  9. PRILOSEC [Concomitant]
  10. ZOSTAVAX [Concomitant]

REACTIONS (1)
  - SEDATION [None]
